FAERS Safety Report 17815996 (Version 1)
Quarter: 2020Q2

REPORT INFORMATION
  Report Type: Spontaneous
  Country: US (occurrence: US)
  Receive Date: 20200521
  Receipt Date: 20200521
  Transmission Date: 20200714
  Serious: No
  Sender: FDA-Public Use
  Company Number: None

PATIENT
  Age: 83 Year
  Sex: Female

DRUGS (1)
  1. HUMALOG MIX75/25 KWIKPEN [Suspect]
     Active Substance: INSULIN LISPRO
     Indication: DIABETES MELLITUS
     Dosage: INJECT 54 UNITS BEFORE BREAKFAST AND 56 UNITS BEFORE DINNER
     Route: 058

REACTIONS (2)
  - Product physical consistency issue [None]
  - Nausea [None]

NARRATIVE: CASE EVENT DATE: 20200519
